FAERS Safety Report 15710526 (Version 2)
Quarter: 2019Q1

REPORT INFORMATION
  Report Type: Report from Study
  Country: US (occurrence: US)
  Receive Date: 20181211
  Receipt Date: 20190125
  Transmission Date: 20190417
  Serious: Yes (Other)
  Sender: FDA-Public Use
  Company Number: US-JNJFOC-20180407641

PATIENT
  Sex: Female

DRUGS (2)
  1. IMBRUVICA [Suspect]
     Active Substance: IBRUTINIB
     Indication: WALDENSTROM^S MACROGLOBULINAEMIA
     Dosage: 1 EXPDT=31-AUG-2020
     Route: 048
  2. IMBRUVICA [Suspect]
     Active Substance: IBRUTINIB
     Indication: WALDENSTROM^S MACROGLOBULINAEMIA
     Route: 048

REACTIONS (9)
  - Somnolence [Unknown]
  - Deafness [Recovering/Resolving]
  - Fatigue [Unknown]
  - Alopecia [Unknown]
  - Off label use [Unknown]
  - Back pain [Unknown]
  - Arthralgia [Unknown]
  - Bone pain [Unknown]
  - Incorrect dose administered by device [Unknown]
